FAERS Safety Report 7127795-0 (Version None)
Quarter: 2010Q4

REPORT INFORMATION
  Report Type: 
  Country: None (occurrence: None)
  Receive Date: 20101130
  Receipt Date: 20080912
  Transmission Date: 20110411
  Serious: No
  Sender: FDA-Public Use
  Company Number: 2008BI024381

PATIENT
  Sex: Female

DRUGS (2)
  1. TYSABRI [Suspect]
     Indication: MULTIPLE SCLEROSIS
     Route: 042
     Dates: start: 20080603
  2. PERCOCET [Concomitant]
     Indication: HEADACHE
     Dates: start: 20030101

REACTIONS (13)
  - CELLULITIS [None]
  - EAR INFECTION [None]
  - FALL [None]
  - FATIGUE [None]
  - FOOT FRACTURE [None]
  - HEADACHE [None]
  - MYALGIA [None]
  - NAUSEA [None]
  - PAIN IN EXTREMITY [None]
  - PHLEBITIS [None]
  - POOR VENOUS ACCESS [None]
  - SINUSITIS [None]
  - VOMITING [None]
